FAERS Safety Report 10246903 (Version 1)
Quarter: 2014Q2

REPORT INFORMATION
  Report Type: Spontaneous
  Country: US (occurrence: None)
  Receive Date: 20140617
  Receipt Date: 20140617
  Transmission Date: 20141212
  Serious: Yes (Hospitalization, Other)
  Sender: FDA-Public Use
  Company Number: US-I00038

PATIENT
  Age: 60 Year
  Sex: Female

DRUGS (5)
  1. MILTEFOSINE [Suspect]
     Indication: BALAMUTHIA INFECTION
  2. CLARITHROMYCIN [Suspect]
     Indication: BALAMUTHIA INFECTION
  3. FLUCONAZOLE [Suspect]
     Indication: BALAMUTHIA INFECTION
  4. AZITHROMYCIN [Suspect]
     Indication: BALAMUTHIA INFECTION
  5. ALBENDAZOLE [Suspect]
     Indication: BALAMUTHIA INFECTION

REACTIONS (7)
  - Nausea [None]
  - Dizziness [None]
  - Vomiting [None]
  - Abasia [None]
  - Hallucination [None]
  - Renal failure acute [None]
  - Off label use [None]
